FAERS Safety Report 7636027-6 (Version None)
Quarter: 2011Q3

REPORT INFORMATION
  Report Type: 
  Country: None (occurrence: None)
  Receive Date: 20110719
  Receipt Date: 20110706
  Transmission Date: 20111222
  Serious: Yes (Hospitalization)
  Sender: FDA-Public Use
  Company Number: 2011037996

PATIENT
  Age: 72 Year
  Sex: Female

DRUGS (7)
  1. CYCLIZINE (CYCLIZINE) [Concomitant]
  2. PACLITAXEL [Concomitant]
  3. ASPIRIN [Concomitant]
  4. INFUMORPH [Concomitant]
  5. ORAMORPH SR [Concomitant]
  6. DALTEPARIN SODIUM [Suspect]
     Indication: LUNG NEOPLASM MALIGNANT
     Dates: start: 20100917, end: 20110106
  7. CARBOPLATIN [Concomitant]

REACTIONS (3)
  - VOMITING [None]
  - NAUSEA [None]
  - PAIN [None]
